FAERS Safety Report 4648010-3 (Version None)
Quarter: 2005Q2

REPORT INFORMATION
  Report Type: 
  Country: None (occurrence: None)
  Receive Date: 20050331
  Receipt Date: 20050114
  Transmission Date: 20051028
  Serious: No
  Sender: FDA-Public Use
  Company Number: 05P-163-0286791-00

PATIENT
  Age: 74 Year
  Sex: Female

DRUGS (5)
  1. HUMIRA [Suspect]
     Indication: RHEUMATOID ARTHRITIS
     Dosage: 40 MG, 1 IN 2 WK, SUBCUTANEOUS
     Route: 058
     Dates: start: 20050104
  2. METHOTREXATE [Concomitant]
  3. PREDNISONE TAB [Concomitant]
  4. TRAZODONE HCL [Concomitant]
  5. PROVELLA-14 [Concomitant]

REACTIONS (5)
  - DECREASED APPETITE [None]
  - DYSPNOEA EXERTIONAL [None]
  - FATIGUE [None]
  - HEADACHE [None]
  - NAUSEA [None]
